FAERS Safety Report 9764236 (Version 1)
Quarter: 2013Q4

REPORT INFORMATION
  Report Type: Spontaneous
  Country: BR (occurrence: BR)
  Receive Date: 20131216
  Receipt Date: 20131216
  Transmission Date: 20140711
  Serious: Yes (Hospitalization)
  Sender: FDA-Public Use
  Company Number: BR-BRISTOL-MYERS SQUIBB COMPANY-19918440

PATIENT
  Sex: Female

DRUGS (1)
  1. YERVOY [Suspect]

REACTIONS (1)
  - Electrolyte imbalance [Unknown]
